FAERS Safety Report 16328521 (Version 1)
Quarter: 2019Q2

REPORT INFORMATION
  Report Type: Spontaneous
  Country: US (occurrence: US)
  Receive Date: 20190518
  Receipt Date: 20190518
  Transmission Date: 20190711
  Serious: No
  Sender: FDA-Public Use
  Company Number: US-APOTEX-2019AP011457

PATIENT
  Sex: Female

DRUGS (2)
  1. FLUTICASONE. [Suspect]
     Active Substance: FLUTICASONE
     Indication: HYPERSENSITIVITY
     Dosage: 15.8 ML, UNK
     Route: 065
  2. TAPAZOLE [Concomitant]
     Active Substance: METHIMAZOLE
     Indication: THYROID THERAPY
     Dosage: UNK
     Route: 065

REACTIONS (3)
  - Sinusitis [Recovering/Resolving]
  - Product substitution issue [Unknown]
  - Drug ineffective [Unknown]
